FAERS Safety Report 6691918-8 (Version None)
Quarter: 2010Q2

REPORT INFORMATION
  Report Type: 
  Country: None (occurrence: None)
  Receive Date: 20100422
  Receipt Date: 20090709
  Transmission Date: 20101027
  Serious: No
  Sender: FDA-Public Use
  Company Number: US-ASTRAZENECA-2009UW19324

PATIENT
  Sex: Male

DRUGS (2)
  1. TOPROL-XL [Suspect]
     Route: 048
     Dates: start: 20070101
  2. CHANTIX [Concomitant]
     Indication: TOBACCO ABUSE

REACTIONS (2)
  - HEART RATE IRREGULAR [None]
  - WRONG TECHNIQUE IN DRUG USAGE PROCESS [None]
